FAERS Safety Report 8389431 (Version 3)
Quarter: 2013Q1

REPORT INFORMATION
  Report Type: Spontaneous
  Country: US (occurrence: US)
  Receive Date: 20120203
  Receipt Date: 20130215
  Transmission Date: 20140127
  Serious: Yes (Hospitalization)
  Sender: FDA-Public Use
  Company Number: US-ROCHE-1034054

PATIENT
  Sex: Female

DRUGS (6)
  1. XOLAIR [Suspect]
     Indication: PRODUCT USED FOR UNKNOWN INDICATION
     Route: 065
     Dates: start: 201106
  2. XOLAIR [Suspect]
     Route: 065
     Dates: start: 201106
  3. XOLAIR [Suspect]
     Route: 065
     Dates: start: 20110928
  4. ADVAIR [Concomitant]
  5. ALBUTEROL [Concomitant]
  6. SINGULAIR [Concomitant]
     Route: 065

REACTIONS (2)
  - Asthma [Unknown]
  - Menstruation irregular [Unknown]
